FAERS Safety Report 8115757-6 (Version None)
Quarter: 2012Q1

REPORT INFORMATION
  Report Type: 
  Country: None (occurrence: None)
  Receive Date: 20120112
  Receipt Date: 20120106
  Transmission Date: 20120608
  Serious: Yes (Other)
  Sender: FDA-Public Use
  Company Number: 2011029228

PATIENT
  Age: 74 Year
  Sex: Female
  Weight: 69.8539 kg

DRUGS (22)
  1. PREDNISONE TAB [Concomitant]
  2. EVISTA [Concomitant]
  3. LORAZEPAM [Concomitant]
  4. DOXEPIN HCL [Concomitant]
  5. THEO-24 ER (THEOPHYLLINE) [Concomitant]
  6. ALLEGRA [Concomitant]
  7. MULTIVITAMIN (ACCOMIN MULTIVITAMIN) [Concomitant]
  8. PATADAY (OLOPATADINE HYDROCHLORIDE) [Concomitant]
  9. LISINOPRIL [Concomitant]
  10. ZEMAIRA [Suspect]
  11. QVAR 40 [Concomitant]
  12. KENALOG [Concomitant]
  13. POTASSIUM CHLORIDE [Concomitant]
  14. FUROSEMIDE [Concomitant]
  15. ZEMAIRA [Suspect]
     Indication: ALPHA-1 ANTI-TRYPSIN DEFICIENCY
     Dosage: SEE IMAGE
     Route: 042
     Dates: start: 20070521
  16. ZEMAIRA [Suspect]
     Indication: CHRONIC OBSTRUCTIVE PULMONARY DISEASE
     Dosage: SEE IMAGE
     Route: 042
     Dates: start: 20070521
  17. ACTONEL [Concomitant]
  18. ALBUTEROL [Concomitant]
  19. CALCIUM CARBONATE [Concomitant]
  20. HEPARIN [Concomitant]
  21. PREVACID [Concomitant]
  22. THERATEARS (CARMELLOSE) [Concomitant]

REACTIONS (4)
  - RASH [None]
  - URTICARIA [None]
  - PRURITUS [None]
  - KIDNEY INFECTION [None]
